FAERS Safety Report 6021339-2 (Version None)
Quarter: 2008Q4

REPORT INFORMATION
  Report Type: 
  Country: None (occurrence: None)
  Receive Date: 20081229
  Receipt Date: 20081222
  Transmission Date: 20090506
  Serious: Yes (Life-Threatening, Hospitalization)
  Sender: FDA-Public Use
  Company Number: A0761366A

PATIENT
  Age: 48 Year
  Sex: Male

DRUGS (3)
  1. ZIAGEN [Suspect]
     Indication: HIV INFECTION
     Dosage: 300MG UNKNOWN
     Route: 065
     Dates: start: 20040201, end: 20071215
  2. KIVEXA [Concomitant]
     Indication: HIV INFECTION
     Route: 065
     Dates: start: 20071215
  3. KALETRA [Concomitant]
     Indication: HIV INFECTION
     Route: 065
     Dates: start: 20050708

REACTIONS (2)
  - ACUTE MYOCARDIAL INFARCTION [None]
  - CHEST PAIN [None]
